FAERS Safety Report 5574717-X (Version None)
Quarter: 2007Q4

REPORT INFORMATION
  Report Type: 
  Country: None (occurrence: None)
  Receive Date: 20071221
  Receipt Date: 20071221
  Transmission Date: 20080405
  Serious: Yes (Other)
  Sender: FDA-Public Use
  Company Number: None

PATIENT
  Age: 44 Month
  Sex: Male
  Weight: 18.1439 kg

DRUGS (2)
  1. AMOXICILLIN [Suspect]
     Indication: BRONCHIAL HYPERREACTIVITY
     Dosage: 1 TEASP. TID PO
     Route: 048
     Dates: start: 20071211, end: 20071216
  2. AMOXICILLIN [Suspect]
     Indication: UPPER RESPIRATORY TRACT INFECTION
     Dosage: 1 TEASP. TID PO
     Route: 048
     Dates: start: 20071211, end: 20071216

REACTIONS (3)
  - MYDRIASIS [None]
  - NERVOUSNESS [None]
  - PSYCHOMOTOR HYPERACTIVITY [None]
